FAERS Safety Report 20946831 (Version 2)
Quarter: 2022Q2

REPORT INFORMATION
  Report Type: Spontaneous
  Country: GB (occurrence: GB)
  Receive Date: 20220610
  Receipt Date: 20220615
  Transmission Date: 20220721
  Serious: Yes (Other)
  Sender: FDA-Public Use
  Company Number: GB-MLMSERVICE-20220531-3585287-1

PATIENT
  Age: 23 Year
  Sex: Female

DRUGS (3)
  1. HYDROCORTISONE SODIUM SUCCINATE [Suspect]
     Active Substance: HYDROCORTISONE SODIUM SUCCINATE
     Indication: Addison^s disease
     Dosage: 20 MG, 1X/DAY
  2. HYDROCORTISONE SODIUM SUCCINATE [Suspect]
     Active Substance: HYDROCORTISONE SODIUM SUCCINATE
     Dosage: DOSE DOUBLED
  3. INSULIN NOS [Concomitant]
     Active Substance: INSULIN NOS
     Indication: Type 1 diabetes mellitus
     Dosage: 92 IU, 1X/DAY

REACTIONS (2)
  - Diabetes mellitus inadequate control [Recovering/Resolving]
  - Condition aggravated [Recovering/Resolving]
